FAERS Safety Report 9897261 (Version 3)
Quarter: 2014Q2

REPORT INFORMATION
  Report Type: Spontaneous
  Country: JP (occurrence: JP)
  Receive Date: 20140214
  Receipt Date: 20140530
  Transmission Date: 20141212
  Serious: Yes (Life-Threatening, Hospitalization, Disabling, Other)
  Sender: FDA-Public Use
  Company Number: JP-ROCHE-1345558

PATIENT
  Age: 69 Year
  Sex: Male

DRUGS (6)
  1. ROCEPHIN [Suspect]
     Indication: BRONCHITIS
     Route: 041
     Dates: start: 20140121, end: 20140121
  2. HOKUNALIN [Concomitant]
     Indication: INFLUENZA
     Dosage: OTHER PURPOSES: BRONCHITIS ACUTE
     Route: 062
     Dates: start: 20140120
  3. TAMIFLU [Concomitant]
     Indication: INFLUENZA
     Dosage: OTHER PURPOSES: BRONCHITIS ACUTE
     Route: 048
     Dates: start: 20140120
  4. TOCLASE [Concomitant]
     Indication: INFLUENZA
     Dosage: OTHER PURPOSES: BRONCHITIS ACUTE
     Route: 048
     Dates: start: 20140120
  5. CARBOCISTEINE [Concomitant]
     Indication: INFLUENZA
     Dosage: OTHER PURPOSES: BRONCHITIS ACUTE
     Route: 048
     Dates: start: 20140120
  6. KLARICID [Concomitant]
     Indication: INFLUENZA
     Dosage: OTHER PURPOSES: BRONCHITIS ACUTE
     Route: 048
     Dates: start: 20140120

REACTIONS (3)
  - Anaphylactic shock [Recovered/Resolved with Sequelae]
  - Cardiac arrest [Recovered/Resolved]
  - Encephalopathy [Not Recovered/Not Resolved]
